FAERS Safety Report 17113580 (Version 1)
Quarter: 2019Q4

REPORT INFORMATION
  Report Type: Spontaneous
  Country: SE (occurrence: SE)
  Receive Date: 20191205
  Receipt Date: 20191205
  Transmission Date: 20200122
  Serious: Yes (Hospitalization)
  Sender: FDA-Public Use
  Company Number: SE-TEVA-2019-SE-1146223

PATIENT
  Age: 64 Year
  Sex: Male

DRUGS (1)
  1. STESOLID [Suspect]
     Active Substance: DIAZEPAM
     Dosage: 4 MG + 4 MG + 5 MG
     Route: 065

REACTIONS (5)
  - Toxicity to various agents [Recovered/Resolved]
  - Dyspnoea [Recovered/Resolved]
  - Depressed level of consciousness [Recovered/Resolved]
  - Oxygen saturation decreased [Recovered/Resolved]
  - Miosis [Recovered/Resolved]

NARRATIVE: CASE EVENT DATE: 20191016
